FAERS Safety Report 5997443-1 (Version None)
Quarter: 2008Q4

REPORT INFORMATION
  Report Type: 
  Country: None (occurrence: None)
  Receive Date: 20081212
  Receipt Date: 20081111
  Transmission Date: 20090506
  Serious: No
  Sender: FDA-Public Use
  Company Number: US-ABBOTT-08P-163-0487318-00

PATIENT
  Sex: Female
  Weight: 90.8 kg

DRUGS (9)
  1. HUMIRA [Suspect]
     Indication: RHEUMATOID ARTHRITIS
     Route: 058
     Dates: start: 20060101
  2. FOLIC ACID [Concomitant]
     Indication: DRUG USE FOR UNKNOWN INDICATION
     Route: 048
  3. METHOTREXATE [Concomitant]
     Indication: RHEUMATOID ARTHRITIS
     Route: 048
  4. VICODIN [Concomitant]
     Indication: PAIN
     Dosage: 5/500MG
  5. FEXOFENADINE [Concomitant]
     Indication: SEASONAL ALLERGY
  6. LISINOPRIL [Concomitant]
     Indication: HYPERTENSION
     Route: 048
  7. CONJUGATED ESTROGENS [Concomitant]
     Indication: DRUG USE FOR UNKNOWN INDICATION
     Route: 048
  8. LEVOTHYROXINE SODIUM [Concomitant]
     Indication: HYPOTHYROIDISM
     Route: 048
  9. RANITIDINE [Concomitant]
     Indication: DYSPEPSIA
     Route: 048

REACTIONS (1)
  - TUBERCULIN TEST POSITIVE [None]
